FAERS Safety Report 4909726-4 (Version None)
Quarter: 2006Q1

REPORT INFORMATION
  Report Type: 
  Country: None (occurrence: None)
  Receive Date: 20060209
  Receipt Date: 20060127
  Transmission Date: 20060701
  Serious: Yes (Other)
  Sender: FDA-Public Use
  Company Number: 2006014336

PATIENT
  Sex: Male
  Weight: 81.6475 kg

DRUGS (11)
  1. LIPITOR [Suspect]
     Indication: BLOOD CHOLESTEROL INCREASED
     Dosage: 10 MG (10 MG, DAILY), ORAL
     Route: 048
     Dates: start: 19970101
  2. AMIODARONE HCL [Suspect]
     Indication: HEART RATE
     Dosage: ORAL
     Route: 048
  3. ASPIRIN [Concomitant]
  4. COREG [Concomitant]
  5. HYZAAR [Concomitant]
  6. ALDACTONE [Concomitant]
  7. OPHTHALMOLOGICALS (OPHTHALMOLOGICALS) [Concomitant]
  8. PREVACID [Concomitant]
  9. IMDUR [Concomitant]
  10. K-DUR 10 [Concomitant]
  11. SYNTHROID [Suspect]
     Indication: HYPOTHYROIDISM
     Dosage: ORAL
     Route: 048

REACTIONS (4)
  - ARRHYTHMIA [None]
  - HYPERTHYROIDISM [None]
  - HYPOTHYROIDISM [None]
  - MYOCARDIAL INFARCTION [None]
